FAERS Safety Report 15179925 (Version 1)
Quarter: 2018Q3

REPORT INFORMATION
  Report Type: Spontaneous
  Country: US (occurrence: US)
  Receive Date: 20180723
  Receipt Date: 20180723
  Transmission Date: 20181010
  Serious: Yes (Other)
  Sender: FDA-Public Use
  Company Number: US-ROCHE-2156162

PATIENT
  Sex: Male

DRUGS (1)
  1. RITUXAN [Suspect]
     Active Substance: RITUXIMAB
     Indication: FACTOR IX DEFICIENCY
     Route: 065

REACTIONS (3)
  - Factor IX deficiency [Unknown]
  - Intentional product use issue [Unknown]
  - Off label use [Unknown]
